FAERS Safety Report 7549384-6 (Version None)
Quarter: 2011Q2

REPORT INFORMATION
  Report Type: 
  Country: None (occurrence: None)
  Receive Date: 20110615
  Receipt Date: 20040701
  Transmission Date: 20111010
  Serious: Yes (Other)
  Sender: FDA-Public Use
  Company Number: PHFR2004IE00614

PATIENT
  Sex: Male

DRUGS (3)
  1. CLOZAPINE [Suspect]
     Indication: SCHIZOPHRENIA
     Dosage: 800 MG, PER DAY
     Route: 048
     Dates: start: 20010731
  2. NEXIUM [Concomitant]
     Indication: PEPTIC ULCER
     Dosage: 40 MG, QD
     Route: 048
  3. KEMADRIN [Concomitant]
     Dosage: 5 MG, QD
     Route: 048

REACTIONS (6)
  - ANISOCYTOSIS [None]
  - MICROCYTOSIS [None]
  - HYPOCHROMASIA [None]
  - PEPTIC ULCER [None]
  - HAEMOGLOBIN DECREASED [None]
  - LYMPHOPENIA [None]
